FAERS Safety Report 6291348-7 (Version None)
Quarter: 2009Q3

REPORT INFORMATION
  Report Type: 
  Country: None (occurrence: None)
  Receive Date: 20090728
  Receipt Date: 20090728
  Transmission Date: 20100115
  Serious: No
  Sender: FDA-Public Use
  Company Number: None

PATIENT
  Age: 72 Year
  Sex: Female

DRUGS (8)
  1. LANTUS [Suspect]
     Indication: DIABETES MELLITUS
     Dosage: 5-15 UNITS DAILY SQ
     Route: 058
     Dates: start: 20090501, end: 20090723
  2. OMEPRAZOLE [Concomitant]
  3. METFORMIN [Concomitant]
  4. INDAPAMIDE [Concomitant]
  5. GABAPENTIN [Concomitant]
  6. DILTIAZEM HCL [Concomitant]
  7. LIPITOR [Concomitant]
  8. GLIMEPIRIDE [Concomitant]

REACTIONS (3)
  - BLOOD GLUCOSE INCREASED [None]
  - DRUG INEFFECTIVE [None]
  - PRODUCT QUALITY ISSUE [None]
